FAERS Safety Report 23832646 (Version 1)
Quarter: 2024Q2

REPORT INFORMATION
  Report Type: Spontaneous
  Country: US (occurrence: None)
  Receive Date: 20240508
  Receipt Date: 20240508
  Transmission Date: 20240715
  Serious: No
  Sender: FDA-Public Use
  Company Number: None

PATIENT
  Age: 78 Year
  Sex: Female
  Weight: 87.75 kg

DRUGS (5)
  1. PAXLOVID [Suspect]
     Active Substance: NIRMATRELVIR\RITONAVIR
     Indication: COVID-19
  2. ELIQUIS [Concomitant]
     Active Substance: APIXABAN
  3. PEPCID [Concomitant]
     Active Substance: FAMOTIDINE
  4. METHYLCOBALAMIN [Concomitant]
     Active Substance: METHYLCOBALAMIN
  5. D [Concomitant]

REACTIONS (5)
  - Fatigue [None]
  - Muscle discomfort [None]
  - Chest discomfort [None]
  - Headache [None]
  - Gait inability [None]

NARRATIVE: CASE EVENT DATE: 20240502
